FAERS Safety Report 25269956 (Version 2)
Quarter: 2025Q3

REPORT INFORMATION
  Report Type: Report from Study
  Country: EU (occurrence: EU)
  Receive Date: 20250505
  Receipt Date: 20250810
  Transmission Date: 20251021
  Serious: Yes (Hospitalization)
  Sender: ALEXION PHARMACEUTICALS
  Company Number: EU-AstraZeneca-CH-00857602A

PATIENT
  Age: 63 Year
  Sex: Female
  Weight: 72 kg

DRUGS (3)
  1. DURVALUMAB [Suspect]
     Active Substance: DURVALUMAB
     Indication: Uterine cancer
     Dosage: 1120 MILLIGRAM, Q3W
     Dates: start: 20241128, end: 20250305
  2. DURVALUMAB [Suspect]
     Active Substance: DURVALUMAB
     Dosage: 1120 MILLIGRAM, Q3W
     Dates: start: 20241128, end: 20250305
  3. OLAPARIB [Suspect]
     Active Substance: OLAPARIB
     Indication: Endometrial cancer
     Dosage: 150 MILLIGRAM, BID

REACTIONS (2)
  - Muscular weakness [Not Recovered/Not Resolved]
  - Dysphagia [Not Recovered/Not Resolved]

NARRATIVE: CASE EVENT DATE: 20250419
